FAERS Safety Report 5019483-1 (Version None)
Quarter: 2006Q2

REPORT INFORMATION
  Report Type: 
  Country: None (occurrence: None)
  Receive Date: 20060605
  Receipt Date: 20060605
  Transmission Date: 20061013
  Serious: No
  Sender: FDA-Public Use
  Company Number: None

PATIENT
  Sex: Female
  Weight: 61.6892 kg

DRUGS (1)
  1. DURAMORPH  10MG/10ML  BAXTER [Suspect]
     Indication: CAESAREAN SECTION
     Dosage: 0.5MG ONE TIME ONLY  ENDOCERVICA  ONE TIME ONLY DOSE
     Route: 005
     Dates: start: 20060526, end: 20060526

REACTIONS (2)
  - POST PROCEDURAL COMPLICATION [None]
  - PRURITUS [None]
